FAERS Safety Report 4464890-9 (Version None)
Quarter: 2004Q4

REPORT INFORMATION
  Report Type: 
  Country: None (occurrence: None)
  Receive Date: 20041004
  Receipt Date: 20040116
  Transmission Date: 20050328
  Serious: No
  Sender: FDA-Public Use
  Company Number: US-GLAXOSMITHKLINE-A0494777A

PATIENT

DRUGS (1)
  1. COREG [Suspect]
     Indication: ILL-DEFINED DISORDER

REACTIONS (1)
  - BLOOD INSULIN ABNORMAL [None]
